FAERS Safety Report 23841738 (Version 1)
Quarter: 2024Q2

REPORT INFORMATION
  Report Type: Spontaneous
  Country: US (occurrence: US)
  Receive Date: 20240510
  Receipt Date: 20240510
  Transmission Date: 20240715
  Serious: No
  Sender: FDA-Public Use
  Company Number: US-COLLEGIUM PHARMACEUTICAL, INC.-20230500413

PATIENT

DRUGS (1)
  1. XTAMPZA ER [Suspect]
     Active Substance: OXYCODONE
     Indication: Pain management
     Dosage: 13.5 MILLIGRAM, BID
     Route: 065
     Dates: start: 20230508, end: 20230514

REACTIONS (2)
  - Drug ineffective [Unknown]
  - Product physical issue [Unknown]

NARRATIVE: CASE EVENT DATE: 20230501
